FAERS Safety Report 15857591 (Version 1)
Quarter: 2019Q1

REPORT INFORMATION
  Report Type: Spontaneous
  Country: US (occurrence: US)
  Receive Date: 20190123
  Receipt Date: 20190123
  Transmission Date: 20190417
  Serious: No
  Sender: FDA-Public Use
  Company Number: US-MYLANLABS-2019M1001181

PATIENT
  Age: 67 Year
  Sex: Female

DRUGS (1)
  1. CLONIDINE TRANSDERMAL SYSTEM [Suspect]
     Active Substance: CLONIDINE
     Dosage: UNK
     Route: 062
     Dates: end: 20190104

REACTIONS (2)
  - Nervousness [Not Recovered/Not Resolved]
  - Application site rash [Unknown]

NARRATIVE: CASE EVENT DATE: 20190104
